FAERS Safety Report 19693620 (Version 11)
Quarter: 2022Q3

REPORT INFORMATION
  Report Type: Report from Study
  Country: US (occurrence: US)
  Receive Date: 20210813
  Receipt Date: 20220802
  Transmission Date: 20221027
  Serious: No
  Sender: FDA-Public Use
  Company Number: NVSC2021US182102

PATIENT
  Sex: Female

DRUGS (4)
  1. ENTRESTO [Suspect]
     Active Substance: SACUBITRIL\VALSARTAN
     Indication: Cardiac failure congestive
     Dosage: 100 MG, BID (49/51MG)
     Route: 048
     Dates: start: 202106
  2. ENTRESTO [Suspect]
     Active Substance: SACUBITRIL\VALSARTAN
     Route: 065
  3. ENTRESTO [Suspect]
     Active Substance: SACUBITRIL\VALSARTAN
     Dosage: UNK
     Route: 065
  4. LASIX [Concomitant]
     Active Substance: FUROSEMIDE
     Indication: Product used for unknown indication
     Dosage: UNK
     Route: 065

REACTIONS (10)
  - Weight decreased [Unknown]
  - Dyspnoea [Recovering/Resolving]
  - Skin swelling [Unknown]
  - Fall [Recovered/Resolved]
  - Groin pain [Unknown]
  - Joint swelling [Unknown]
  - Weight increased [Unknown]
  - Sneezing [Unknown]
  - Rhinorrhoea [Unknown]
  - Cough [Recovered/Resolved]
